FAERS Safety Report 8437563-5 (Version None)
Quarter: 2012Q2

REPORT INFORMATION
  Report Type: 
  Country: None (occurrence: None)
  Receive Date: 20120614
  Receipt Date: 20120501
  Transmission Date: 20120825
  Serious: No
  Sender: FDA-Public Use
  Company Number: US-AMGEN-USASP2012022000

PATIENT
  Age: 62 Year
  Sex: Female
  Weight: 66.213 kg

DRUGS (4)
  1. PROLIA [Suspect]
     Indication: OSTEOPOROSIS POSTMENOPAUSAL
     Dosage: 60 MG, ONE TIME DOSE
     Route: 058
     Dates: start: 20120405
  2. SINGULAIR [Concomitant]
     Dosage: UNK
  3. VYTORIN [Concomitant]
     Dosage: UNK
  4. PRILOSEC [Concomitant]
     Dosage: UNK

REACTIONS (5)
  - FEELING HOT [None]
  - CHILLS [None]
  - ABDOMINAL PAIN [None]
  - BACK PAIN [None]
  - FLATULENCE [None]
